FAERS Safety Report 20663419 (Version 1)
Quarter: 2022Q2

REPORT INFORMATION
  Report Type: Report from Study
  Country: US (occurrence: US)
  Receive Date: 20220401
  Receipt Date: 20220401
  Transmission Date: 20220721
  Serious: Yes (Hospitalization)
  Sender: FDA-Public Use
  Company Number: US-GSKCCFUS-Case-01333812_AE-77515

PATIENT
  Sex: Male

DRUGS (1)
  1. MEPOLIZUMAB [Suspect]
     Active Substance: MEPOLIZUMAB
     Indication: Asthma
     Dosage: UNK UNK, CYC
     Route: 058

REACTIONS (5)
  - Injury [Unknown]
  - Accident [Unknown]
  - Nerve injury [Unknown]
  - Hypersensitivity [Not Recovered/Not Resolved]
  - Device use error [Unknown]
